FAERS Safety Report 23667173 (Version 2)
Quarter: 2024Q4

REPORT INFORMATION
  Report Type: Spontaneous
  Country: IT (occurrence: IT)
  Receive Date: 20240325
  Receipt Date: 20241111
  Transmission Date: 20250115
  Serious: Yes (Disabling, Other)
  Sender: CHEPLAPHARM
  Company Number: None

PATIENT
  Age: 21 Year
  Sex: Male

DRUGS (2)
  1. CLONAZEPAM [Suspect]
     Active Substance: CLONAZEPAM
     Indication: Epilepsy
     Dosage: TAKING FOR 6 YEARS., TREATED FOR 6 YEARS WITH 30 GTT OF RIVOTRIL + 10 GTT AS NEEDED
     Route: 048
     Dates: start: 201808, end: 20240918
  2. EN [Suspect]
     Active Substance: DELORAZEPAM
     Indication: Panic attack
     Route: 048
     Dates: start: 20240909

REACTIONS (10)
  - Memory impairment [Not Recovered/Not Resolved]
  - Asthenia [Not Recovered/Not Resolved]
  - Fatigue [Not Recovered/Not Resolved]
  - Eye pain [Not Recovered/Not Resolved]
  - Nystagmus [Not Recovered/Not Resolved]
  - Condition aggravated [Not Recovered/Not Resolved]
  - Influenza like illness [Not Recovered/Not Resolved]
  - Tension headache [Not Recovered/Not Resolved]
  - Drug dependence [Unknown]
  - Sedation complication [Not Recovered/Not Resolved]

NARRATIVE: CASE EVENT DATE: 20210501
